FAERS Safety Report 22374573 (Version 1)
Quarter: 2023Q2

REPORT INFORMATION
  Report Type: Spontaneous
  Country: DE (occurrence: None)
  Receive Date: 20230526
  Receipt Date: 20230526
  Transmission Date: 20230722
  Serious: Yes (Other)
  Sender: FDA-Public Use
  Company Number: 2023A117864

PATIENT
  Age: 58 Year
  Sex: Male

DRUGS (1)
  1. IMFINZI [Suspect]
     Active Substance: DURVALUMAB
     Indication: Bile duct cancer
     Route: 042
     Dates: start: 202302

REACTIONS (3)
  - Thrombocytopenia [Unknown]
  - Cardiac disorder [Unknown]
  - Myocarditis [Unknown]

NARRATIVE: CASE EVENT DATE: 20230301
